FAERS Safety Report 7096228-5 (Version None)
Quarter: 2010Q4

REPORT INFORMATION
  Report Type: 
  Country: None (occurrence: None)
  Receive Date: 20101109
  Receipt Date: 20101109
  Transmission Date: 20110411
  Serious: Yes (Death)
  Sender: FDA-Public Use
  Company Number: None

PATIENT
  Sex: Female
  Weight: 68.2 kg

DRUGS (2)
  1. CISPLATIN [Suspect]
     Indication: SMALL CELL LUNG CANCER STAGE UNSPECIFIED
     Dosage: 130MG EVERY 21 DAYS IV DRIP
     Route: 041
     Dates: start: 20100907, end: 20101005
  2. KML001 2.5MG TABLETS [Suspect]
     Indication: SMALL CELL LUNG CANCER STAGE UNSPECIFIED
     Dosage: 15MG DAYS 1 - 14 OF 21 PO
     Route: 048
     Dates: start: 20100907, end: 20101015

REACTIONS (2)
  - DISEASE PROGRESSION [None]
  - FATIGUE [None]
